FAERS Safety Report 6594137-9 (Version None)
Quarter: 2010Q1

REPORT INFORMATION
  Report Type: 
  Country: None (occurrence: None)
  Receive Date: 20100222
  Receipt Date: 20100212
  Transmission Date: 20100710
  Serious: Yes (Hospitalization)
  Sender: FDA-Public Use
  Company Number: JP-ROCHE-685197

PATIENT
  Sex: Male

DRUGS (14)
  1. BEVACIZUMAB [Suspect]
     Indication: RECTAL CANCER
     Dosage: DRUG NAME: AVASTINA100MG/4ML(BEVACIZUMAB).
     Route: 041
     Dates: start: 20091125, end: 20100121
  2. BEVACIZUMAB [Suspect]
     Dosage: DRUG NAME: AVASTINA100MG/4ML(BEVACIZUMAB).
     Route: 041
     Dates: start: 20100210
  3. OXALIPLATIN [Suspect]
     Indication: RECTAL CANCER
     Route: 041
     Dates: start: 20091125, end: 20100123
  4. OXALIPLATIN [Suspect]
     Route: 041
     Dates: start: 20100210
  5. FLUOROURACIL [Suspect]
     Indication: RECTAL CANCER
     Route: 040
     Dates: start: 20091125, end: 20100121
  6. FLUOROURACIL [Suspect]
     Dosage: ROUTE: INTRAVENOUS DRIP
     Route: 040
     Dates: start: 20091125, end: 20100123
  7. FLUOROURACIL [Suspect]
     Route: 040
     Dates: start: 20100210
  8. FLUOROURACIL [Suspect]
     Route: 040
     Dates: start: 20100210
  9. LEVOFOLINATE [Suspect]
     Indication: RECTAL CANCER
     Route: 041
     Dates: start: 20091125, end: 20100121
  10. LEVOFOLINATE [Suspect]
     Route: 041
     Dates: start: 20100210
  11. KYTRIL [Suspect]
     Indication: PROPHYLAXIS OF NAUSEA AND VOMITING
     Dosage: FORM: KYTRIL 3MG BAG(GRANISETRON) DAILY DOSE: 3 MGX /
     Route: 042
     Dates: start: 20091125
  12. DECADRON [Suspect]
     Indication: PROPHYLAXIS OF NAUSEA AND VOMITING
     Dosage: DECADRON(DEXAMETHASONE SODIUM PHOSPHATE) DAILY DOSE: 8 MG?/
     Route: 042
     Dates: start: 20091125
  13. LENDORMIN [Suspect]
     Indication: INSOMNIA
     Dosage: LENDORMIN D(BROTIZOLAM) DAILY DOSE: 0.25 MG?/
     Route: 048
     Dates: start: 20070225
  14. ADALAT [Suspect]
     Indication: HYPERTENSION
     Route: 048
     Dates: start: 20100107

REACTIONS (2)
  - HYPERKALAEMIA [None]
  - HYPERTENSION [None]
